FAERS Safety Report 7894623-5 (Version None)
Quarter: 2011Q4

REPORT INFORMATION
  Report Type: 
  Country: None (occurrence: None)
  Receive Date: 20111106
  Receipt Date: 20110817
  Transmission Date: 20120403
  Serious: No
  Sender: FDA-Public Use
  Company Number: US-AMGEN-USASP2011041848

PATIENT
  Sex: Female

DRUGS (1)
  1. ENBREL [Suspect]
     Indication: RHEUMATOID ARTHRITIS
     Dosage: 50 MG, QWK
     Dates: start: 20080101

REACTIONS (7)
  - ARTHRITIS [None]
  - HAND DEFORMITY [None]
  - OROPHARYNGEAL PAIN [None]
  - SINUSITIS [None]
  - HYPOTHYROIDISM [None]
  - MOBILITY DECREASED [None]
  - HEARING IMPAIRED [None]
